FAERS Safety Report 19751535 (Version 1)
Quarter: 2021Q3

REPORT INFORMATION
  Report Type: Spontaneous
  Country: GB (occurrence: GB)
  Receive Date: 20210827
  Receipt Date: 20210827
  Transmission Date: 20211014
  Serious: Yes (Death, Hospitalization)
  Sender: FDA-Public Use
  Company Number: GB-DRREDDYS-GER/UKI/18/0101200

PATIENT
  Age: 67 Year
  Sex: Female

DRUGS (22)
  1. TRASTUZUMAB. [Suspect]
     Active Substance: TRASTUZUMAB
     Indication: HER2 POSITIVE BREAST CANCER
     Route: 058
     Dates: start: 20160531, end: 20161115
  2. TRASTUZUMAB. [Suspect]
     Active Substance: TRASTUZUMAB
     Indication: BREAST CANCER METASTATIC
     Route: 058
     Dates: start: 20151124, end: 20151221
  3. ENOXAPARIN [Concomitant]
     Active Substance: ENOXAPARIN
     Indication: THROMBOSIS PROPHYLAXIS
     Route: 058
     Dates: start: 20160104, end: 20160106
  4. ENOXAPARIN [Concomitant]
     Active Substance: ENOXAPARIN
     Indication: THROMBOSIS PROPHYLAXIS
     Dosage: 20 MG, QD (20 MG, QD,(PREVENTION OF VENOUS THROMBOEMBOLISM))
     Route: 058
     Dates: start: 20160106
  5. EXEMESTANE. [Suspect]
     Active Substance: EXEMESTANE
     Indication: BREAST CANCER METASTATIC
     Dates: end: 20160712
  6. CAPECITABINE. [Suspect]
     Active Substance: CAPECITABINE
     Route: 048
     Dates: start: 20161213, end: 20161216
  7. CAPECITABINE. [Suspect]
     Active Substance: CAPECITABINE
     Dates: start: 20160531, end: 20161115
  8. OMEPRAZOLE. [Concomitant]
     Active Substance: OMEPRAZOLE
     Indication: PRODUCT USED FOR UNKNOWN INDICATION
     Route: 048
  9. CAPECITABINE. [Suspect]
     Active Substance: CAPECITABINE
     Indication: HER2 POSITIVE BREAST CANCER
     Dosage: 1500 MILLIGRAM
     Route: 048
     Dates: start: 20161122, end: 20161213
  10. TAMOXIFEN [Suspect]
     Active Substance: TAMOXIFEN
     Indication: BREAST CANCER METASTATIC
     Dates: start: 20160712, end: 20160802
  11. PACLITAXEL. [Suspect]
     Active Substance: PACLITAXEL
     Indication: HER2 POSITIVE BREAST CANCER
     Route: 042
     Dates: start: 20151124, end: 20151221
  12. PACLITAXEL. [Suspect]
     Active Substance: PACLITAXEL
     Indication: BREAST CANCER METASTATIC
     Dosage: UNK
     Dates: start: 20161124
  13. ADALIMUMAB [Suspect]
     Active Substance: ADALIMUMAB
     Indication: PRODUCT USED FOR UNKNOWN INDICATION
     Dosage: 40 MILLIGRAM, Q2W
     Route: 058
  14. CAPECITABINE. [Suspect]
     Active Substance: CAPECITABINE
     Dosage: 1300 MILLIGRAM (0.5 DAY)
     Route: 048
     Dates: start: 20161213, end: 20161216
  15. EXEMESTANE. [Suspect]
     Active Substance: EXEMESTANE
     Indication: HER2 POSITIVE BREAST CANCER
     Dosage: 25 MG, QD
     Route: 048
     Dates: start: 20160531, end: 20160610
  16. TAMOXIFEN [Suspect]
     Active Substance: TAMOXIFEN
     Indication: HER2 POSITIVE BREAST CANCER
     Dosage: 20 MG, QD
     Route: 048
     Dates: start: 20160712, end: 20160802
  17. PACLITAXEL. [Suspect]
     Active Substance: PACLITAXEL
     Dates: start: 20160531, end: 20161115
  18. OMEPRAZOLE. [Concomitant]
     Active Substance: OMEPRAZOLE
     Dosage: 20 MILLIGRAM, QD
     Route: 048
  19. CAPECITABINE. [Suspect]
     Active Substance: CAPECITABINE
     Indication: BREAST CANCER METASTATIC
     Dosage: 1000 MG, UNK
     Route: 048
     Dates: start: 20161122
  20. PACLITAXEL. [Suspect]
     Active Substance: PACLITAXEL
     Route: 042
     Dates: start: 20161122
  21. ADCAL?D3 [Concomitant]
     Active Substance: CALCIUM CARBONATE\CHOLECALCIFEROL
     Indication: PRODUCT USED FOR UNKNOWN INDICATION
     Route: 048
     Dates: start: 20101221
  22. ADCAL?D3 [Concomitant]
     Active Substance: CALCIUM CARBONATE\CHOLECALCIFEROL
     Route: 048
     Dates: start: 20101221, end: 2015

REACTIONS (34)
  - Death [Fatal]
  - Blood creatinine increased [Recovered/Resolved]
  - Pain [Recovered/Resolved]
  - Hypernatraemia [Recovered/Resolved]
  - Sensory loss [Not Recovered/Not Resolved]
  - Neutrophil count increased [Recovered/Resolved]
  - Blood glucose increased [Recovered/Resolved]
  - Hypertension [Recovered/Resolved with Sequelae]
  - Asthenia [Not Recovered/Not Resolved]
  - C-reactive protein increased [Unknown]
  - Cerebral haemorrhage [Recovered/Resolved with Sequelae]
  - Blood alkaline phosphatase increased [Recovered/Resolved with Sequelae]
  - Vomiting [Recovered/Resolved]
  - Nausea [Recovered/Resolved]
  - Agitation [Recovered/Resolved]
  - Aspartate aminotransferase increased [Recovered/Resolved]
  - Blood phosphorus increased [Recovered/Resolved]
  - Balance disorder [Not Recovered/Not Resolved]
  - Blood urea increased [Unknown]
  - Protein total decreased [Recovered/Resolved]
  - Hypokalaemia [Recovered/Resolved]
  - Constipation [Recovered/Resolved]
  - Fatigue [Recovered/Resolved]
  - Sensory loss [Not Recovered/Not Resolved]
  - Pyrexia [Recovered/Resolved]
  - Blood bilirubin increased [Recovered/Resolved]
  - Alanine aminotransferase increased [Recovered/Resolved]
  - Hypoalbuminaemia [Recovered/Resolved]
  - Urinary tract infection [Unknown]
  - Lymphopenia [Recovered/Resolved with Sequelae]
  - Ascites [Not Recovered/Not Resolved]
  - White blood cell count increased [Recovered/Resolved]
  - Dyspnoea [Recovered/Resolved]
  - Diarrhoea [Recovered/Resolved]

NARRATIVE: CASE EVENT DATE: 20151124
